FAERS Safety Report 10043214 (Version 2)
Quarter: 2014Q1

REPORT INFORMATION
  Report Type: Spontaneous
  Country: US (occurrence: US)
  Receive Date: 20140328
  Receipt Date: 20140328
  Transmission Date: 20141002
  Serious: Yes (Other)
  Sender: FDA-Public Use
  Company Number: US-BEH-2013034745

PATIENT
  Age: 80 Year
  Sex: Male

DRUGS (3)
  1. PRIVIGEN [Suspect]
     Indication: IMMUNE ENHANCEMENT THERAPY
     Dosage: EVERY 4-5 WEEKS WITH INFUSION TIME OVER 3-4 HOURS
     Route: 042
     Dates: start: 20130105, end: 20130105
  2. PRIVIGEN [Suspect]
     Indication: CHRONIC LYMPHOCYTIC LEUKAEMIA
     Dosage: EVERY 4-5 WEEKS WITH INFUSION TIME OVER 3-4 HOURS
     Route: 042
     Dates: start: 20130105, end: 20130105
  3. TYLENOL [Concomitant]
     Indication: PREMEDICATION

REACTIONS (5)
  - Eosinophilic cellulitis [Not Recovered/Not Resolved]
  - Pruritus [Not Recovered/Not Resolved]
  - Rash erythematous [Not Recovered/Not Resolved]
  - Pain [Not Recovered/Not Resolved]
  - Rash generalised [Not Recovered/Not Resolved]
